FAERS Safety Report 21270247 (Version 1)
Quarter: 2022Q3

REPORT INFORMATION
  Report Type: Spontaneous
  Country: US (occurrence: US)
  Receive Date: 20220830
  Receipt Date: 20220830
  Transmission Date: 20221027
  Serious: Yes (Hospitalization, Other)
  Sender: FDA-Public Use
  Company Number: US-PHARMALEX-2022000905

PATIENT
  Age: 61 Year
  Sex: Male

DRUGS (4)
  1. TRAMADOL HYDROCHLORIDE [Interacting]
     Active Substance: TRAMADOL HYDROCHLORIDE
     Indication: Product used for unknown indication
     Dosage: UNK
     Route: 065
  2. MEPERIDINE [Interacting]
     Active Substance: MEPERIDINE
     Indication: Postoperative care
     Dosage: UNK
     Route: 065
  3. FENTANYL [Interacting]
     Active Substance: FENTANYL
     Indication: Postoperative care
     Dosage: UNK
     Route: 065
  4. CYCLOBENZAPRINE [Interacting]
     Active Substance: CYCLOBENZAPRINE
     Indication: Postoperative care
     Dosage: UNK
     Route: 065

REACTIONS (3)
  - Serotonin syndrome [Recovered/Resolved]
  - Drug interaction [Recovered/Resolved]
  - Hypotension [Recovered/Resolved]
